FAERS Safety Report 14946824 (Version 1)
Quarter: 2018Q2

REPORT INFORMATION
  Report Type: Spontaneous
  Country: US (occurrence: US)
  Receive Date: 20180529
  Receipt Date: 20180529
  Transmission Date: 20180711
  Serious: Yes (Other)
  Sender: FDA-Public Use
  Company Number: US-BAYER-2018-095720

PATIENT
  Age: 62 Year
  Sex: Female

DRUGS (1)
  1. GADAVIST [Suspect]
     Active Substance: GADOBUTROL
     Indication: NUCLEAR MAGNETIC RESONANCE IMAGING BRAIN
     Dosage: 7 ML, ONCE
     Dates: start: 20180515, end: 20180515

REACTIONS (5)
  - Throat tightness [Recovering/Resolving]
  - Dyspnoea [Recovering/Resolving]
  - Eye swelling [Recovering/Resolving]
  - Cough [Recovering/Resolving]
  - Erythema [Recovering/Resolving]

NARRATIVE: CASE EVENT DATE: 20180515
